FAERS Safety Report 5771622-0 (Version None)
Quarter: 2008Q2

REPORT INFORMATION
  Report Type: 
  Country: None (occurrence: None)
  Receive Date: 20080612
  Receipt Date: 20080612
  Transmission Date: 20081010
  Serious: Yes (Hospitalization)
  Sender: FDA-Public Use
  Company Number: None

PATIENT
  Sex: Male
  Weight: 91.8 kg

DRUGS (2)
  1. CAPECITABINE 500MG LOT US042 EXPIRE 11/2008 [Suspect]
     Indication: OESOPHAGEAL CARCINOMA
     Dosage: 2,600 M-F QD X 29 DAYS PO
     Route: 048
     Dates: start: 20050324, end: 20080421
  2. OXALIPLATIN [Suspect]
     Indication: OESOPHAGEAL CARCINOMA
     Dosage: 184.45 MG Q2 WEEKS, X3 IV
     Route: 042
     Dates: start: 20080324, end: 20080421

REACTIONS (4)
  - ABDOMINAL PAIN UPPER [None]
  - ADHESION [None]
  - DYSPNOEA [None]
  - INTESTINAL OPERATION [None]
